FAERS Safety Report 20753370 (Version 2)
Quarter: 2023Q2

REPORT INFORMATION
  Report Type: Spontaneous
  Country: US (occurrence: None)
  Receive Date: 20220426
  Receipt Date: 20230420
  Transmission Date: 20230722
  Serious: No
  Sender: FDA-Public Use
  Company Number: US-ROCHE-2785302

PATIENT
  Age: 83 Year
  Sex: Male

DRUGS (2)
  1. ESBRIET [Suspect]
     Active Substance: PIRFENIDONE
     Indication: Idiopathic pulmonary fibrosis
     Route: 048
     Dates: start: 20210218
  2. ESBRIET [Suspect]
     Active Substance: PIRFENIDONE
     Dosage: TOOK TWO 267MG TABLETS 3 TIMES FOR THREE WEEKS AND GRADUALLY BUILT BACK UP TO 3 TABLETS A DAY.
     Route: 048
     Dates: start: 20210225

REACTIONS (7)
  - Diarrhoea [Unknown]
  - Asthenia [Unknown]
  - Nausea [Unknown]
  - Dizziness [Unknown]
  - Memory impairment [Unknown]
  - Heart rate increased [Unknown]
  - Fatigue [Unknown]

NARRATIVE: CASE EVENT DATE: 20221028
